FAERS Safety Report 9903557 (Version 5)
Quarter: 2014Q1

REPORT INFORMATION
  Report Type: Report from Study
  Country: AU (occurrence: AU)
  Receive Date: 20140217
  Receipt Date: 20140317
  Transmission Date: 20141002
  Serious: Yes (Hospitalization)
  Sender: FDA-Public Use
  Company Number: AU-US-EMD SERONO, INC.-7265080

PATIENT
  Age: 46 Year
  Sex: Male
  Weight: 64 kg

DRUGS (4)
  1. REBIF [Suspect]
     Indication: MULTIPLE SCLEROSIS
     Route: 058
     Dates: start: 20100728, end: 20140228
  2. DITROPAN                           /00538901/ [Concomitant]
     Indication: BLADDER DISORDER
  3. COLOXYL                            /00061602/ [Concomitant]
     Indication: CONSTIPATION
  4. SOMAC [Concomitant]
     Indication: GASTROOESOPHAGEAL REFLUX DISEASE

REACTIONS (15)
  - Multiple sclerosis relapse [Unknown]
  - Pneumonia [Unknown]
  - Cystitis [Unknown]
  - Gastrointestinal infection [Unknown]
  - Rash [Unknown]
  - Urinary tract infection [Recovered/Resolved]
  - Weight decreased [Not Recovered/Not Resolved]
  - Decreased appetite [Unknown]
  - Influenza [Unknown]
  - Vomiting [Unknown]
  - Diarrhoea [Unknown]
  - Seborrhoeic dermatitis [Unknown]
  - Fatigue [Not Recovered/Not Resolved]
  - Injection site erythema [Unknown]
  - Influenza like illness [Unknown]
